FAERS Safety Report 11282005 (Version 1)
Quarter: 2015Q3

REPORT INFORMATION
  Report Type: Spontaneous
  Country: US (occurrence: US)
  Receive Date: 20150718
  Receipt Date: 20150718
  Transmission Date: 20151125
  Serious: No
  Sender: FDA-Public Use
  Company Number: US-009507513-1507USA007198

PATIENT
  Sex: Male

DRUGS (1)
  1. GRASTEK [Suspect]
     Active Substance: PHLEUM PRATENSE POLLEN
     Dosage: 2800 BIOEQUIVALENT ALLERGY UNIT (BAU), QD (ONCE DAILY)
     Route: 060
     Dates: start: 20150709

REACTIONS (2)
  - Lip swelling [Unknown]
  - Pruritus [Unknown]

NARRATIVE: CASE EVENT DATE: 20150709
